FAERS Safety Report 17856863 (Version 2)
Quarter: 2020Q3

REPORT INFORMATION
  Report Type: Report from Study
  Country: IN (occurrence: IN)
  Receive Date: 20200603
  Receipt Date: 20200922
  Transmission Date: 20201103
  Serious: Yes (Other)
  Sender: FDA-Public Use
  Company Number: NVSC2020IN153668

PATIENT
  Sex: Female

DRUGS (2)
  1. SPEXIB [Suspect]
     Active Substance: CERITINIB
     Indication: NON-SMALL CELL LUNG CANCER
     Dosage: 450 MG, QD
     Route: 048
     Dates: start: 20180107
  2. SPEXIB [Suspect]
     Active Substance: CERITINIB
     Dosage: 300 MG, QD (SINCE END OF 2018)
     Route: 048

REACTIONS (4)
  - Cough [Not Recovered/Not Resolved]
  - Laryngeal disorder [Not Recovered/Not Resolved]
  - Dyspnoea [Not Recovered/Not Resolved]
  - Blood creatinine abnormal [Recovering/Resolving]

NARRATIVE: CASE EVENT DATE: 2018
